FAERS Safety Report 5674981-2 (Version None)
Quarter: 2008Q1

REPORT INFORMATION
  Report Type: 
  Country: None (occurrence: None)
  Receive Date: 20080320
  Receipt Date: 20080229
  Transmission Date: 20080703
  Serious: Yes (Other)
  Sender: FDA-Public Use
  Company Number: PE-BAYER-PE-2007-015063

PATIENT

DRUGS (4)
  1. CAMPATH [Suspect]
     Indication: MYCOSIS FUNGOIDES
     Dosage: UNIT DOSE: 30 MG
     Route: 042
  2. CAMPATH [Suspect]
     Dosage: UNIT DOSE: 3 MG
     Route: 042
  3. SULFAMETHOXAZOLE AND TRIMETHOPRIM [Concomitant]
     Indication: PROPHYLAXIS
  4. ACYCLOVIR [Concomitant]
     Indication: PROPHYLAXIS

REACTIONS (2)
  - CYTOMEGALOVIRUS INFECTION [None]
  - KAPOSI'S SARCOMA [None]
